FAERS Safety Report 21548762 (Version 2)
Quarter: 2022Q4

REPORT INFORMATION
  Report Type: Spontaneous
  Country: US (occurrence: US)
  Receive Date: 20221103
  Receipt Date: 20221118
  Transmission Date: 20230113
  Serious: Yes (Other)
  Sender: FDA-Public Use
  Company Number: US-TEVA-2022-US-2821391

PATIENT
  Age: 62 Year
  Sex: Female

DRUGS (15)
  1. CISPLATIN [Suspect]
     Active Substance: CISPLATIN
     Indication: Metastatic neoplasm
     Dosage: AS A PART OF METHOTREXATE, VINBLASTINE, DOXORUBICIN AND CISPLATIN
     Route: 065
     Dates: start: 201904
  2. CISPLATIN [Suspect]
     Active Substance: CISPLATIN
     Indication: Sarcomatoid carcinoma
     Dosage: AS A PART OF CISPLATIN AND GEMCITABINE REGIMEN
     Route: 065
     Dates: start: 2019, end: 2019
  3. CISPLATIN [Suspect]
     Active Substance: CISPLATIN
     Indication: Transitional cell carcinoma
  4. DOXORUBICIN [Suspect]
     Active Substance: DOXORUBICIN
     Indication: Metastatic neoplasm
     Dosage: AS A PART OF METHOTREXATE, VINBLASTINE, DOXORUBICIN AND CISPLATIN
     Route: 065
     Dates: start: 201904
  5. DOXORUBICIN [Suspect]
     Active Substance: DOXORUBICIN
     Indication: Sarcomatoid carcinoma
  6. DOXORUBICIN [Suspect]
     Active Substance: DOXORUBICIN
     Indication: Transitional cell carcinoma
  7. GEMCITABINE [Suspect]
     Active Substance: GEMCITABINE
     Indication: Metastatic neoplasm
     Dosage: AS A PART OF CISPLATIN AND GEMCITABINE REGIMEN
     Route: 065
     Dates: start: 2019, end: 2019
  8. GEMCITABINE [Suspect]
     Active Substance: GEMCITABINE
     Indication: Sarcomatoid carcinoma
  9. GEMCITABINE [Suspect]
     Active Substance: GEMCITABINE
     Indication: Transitional cell carcinoma
  10. METHOTREXATE [Suspect]
     Active Substance: METHOTREXATE
     Indication: Metastatic neoplasm
     Dosage: AS A PART OF METHOTREXATE, VINBLASTINE, DOXORUBICIN AND CISPLATIN
     Route: 065
     Dates: start: 201904
  11. METHOTREXATE [Suspect]
     Active Substance: METHOTREXATE
     Indication: Sarcomatoid carcinoma
  12. METHOTREXATE [Suspect]
     Active Substance: METHOTREXATE
     Indication: Transitional cell carcinoma
  13. VINBLASTINE [Suspect]
     Active Substance: VINBLASTINE
     Indication: Metastatic neoplasm
     Dosage: AS A PART OF METHOTREXATE, VINBLASTINE, DOXORUBICINE AND CISPLATIN
     Route: 065
     Dates: start: 201904
  14. VINBLASTINE [Suspect]
     Active Substance: VINBLASTINE
     Indication: Sarcomatoid carcinoma
  15. VINBLASTINE [Suspect]
     Active Substance: VINBLASTINE
     Indication: Transitional cell carcinoma

REACTIONS (3)
  - Pseudomonal bacteraemia [Unknown]
  - Hepatic function abnormal [Unknown]
  - Drug ineffective [Unknown]

NARRATIVE: CASE EVENT DATE: 20190101
